FAERS Safety Report 16520844 (Version 15)
Quarter: 2021Q4

REPORT INFORMATION
  Report Type: Report from Study
  Country: GB (occurrence: GB)
  Receive Date: 20190702
  Receipt Date: 20211013
  Transmission Date: 20220303
  Serious: Yes (Death, Hospitalization)
  Sender: FDA-Public Use
  Company Number: GB-ROCHE-1836249

PATIENT
  Age: 33 Year
  Sex: Female

DRUGS (121)
  1. TRASTUZUMAB [Suspect]
     Active Substance: TRASTUZUMAB
     Indication: HER2 positive breast cancer
     Dosage: 567 MILLIGRAM, QD (LOADING DOSE)
     Route: 042
     Dates: start: 20160609, end: 20160609
  2. TRASTUZUMAB [Suspect]
     Active Substance: TRASTUZUMAB
     Dosage: 420 MILLIGRAM, Q3W (3 TIMES/WK)
     Route: 042
     Dates: start: 20160701, end: 20160727
  3. TRASTUZUMAB [Suspect]
     Active Substance: TRASTUZUMAB
     Dosage: 472.5 MILLIGRAM, Q3W
     Route: 042
     Dates: start: 20170519, end: 20171228
  4. TRASTUZUMAB [Suspect]
     Active Substance: TRASTUZUMAB
     Dosage: 420 MILLIGRAM, Q3W (3 TIMES/WK  )
     Route: 042
     Dates: start: 20160907, end: 20160926
  5. TRASTUZUMAB [Suspect]
     Active Substance: TRASTUZUMAB
     Dosage: 420 MILLIGRAM, Q3W (3 TIMES/WK)
     Route: 042
     Dates: start: 20170224, end: 20170407
  6. TRASTUZUMAB [Suspect]
     Active Substance: TRASTUZUMAB
     Dosage: 451.5 MILLIGRAM, Q3W (3 TIMES/WK)
     Route: 042
     Dates: start: 20161202, end: 20170203
  7. TRASTUZUMAB [Suspect]
     Active Substance: TRASTUZUMAB
     Dosage: 451.5 MILLIGRAM, Q3W (3 TIMES/WK)
     Route: 042
     Dates: start: 20161111, end: 20170519
  8. TRASTUZUMAB [Suspect]
     Active Substance: TRASTUZUMAB
     Dosage: 451.5 MILLIGRAM, Q3W (3 TIMES/WK)
     Route: 042
     Dates: start: 20161021, end: 20161111
  9. TRASTUZUMAB [Suspect]
     Active Substance: TRASTUZUMAB
     Dosage: 472.5 MILLIGRAM, Q3W (3 TIMES/WK)
     Route: 042
     Dates: start: 20170612, end: 20171228
  10. TRASTUZUMAB [Suspect]
     Active Substance: TRASTUZUMAB
     Dosage: 451.5 MILLIGRAM, Q3W (3 TIMES/WK)
     Route: 042
     Dates: start: 20170428, end: 20170519
  11. TRASTUZUMAB [Suspect]
     Active Substance: TRASTUZUMAB
     Dosage: 441 MILLIGRAM, Q3W (441 MILLIGRAM, 3 TIMES/WK   )
     Route: 042
     Dates: start: 20160907, end: 20160926
  12. TRASTUZUMAB [Suspect]
     Active Substance: TRASTUZUMAB
     Dosage: 430.5 MILLIGRAM, Q3W (430.5 MILLIGRAM, 3 TIMES/WK  )
     Route: 042
     Dates: start: 20170224, end: 20170407
  13. TRASTUZUMAB [Suspect]
     Active Substance: TRASTUZUMAB
     Dosage: 567 MILLIGRAM, Q3W (567 MILLIGRAM, Q3WK)
     Route: 041
     Dates: start: 20160609, end: 20160609
  14. TRASTUZUMAB [Suspect]
     Active Substance: TRASTUZUMAB
     Dosage: 441 MILLIGRAM (441 MILLIGRAM)
     Route: 042
     Dates: start: 20161202, end: 20170203
  15. DOCETAXEL [Suspect]
     Active Substance: DOCETAXEL
     Indication: HER2 positive breast cancer
     Dosage: 110 MILLIGRAM, Q3W
     Route: 042
     Dates: start: 20160907, end: 20161021
  16. DOCETAXEL [Suspect]
     Active Substance: DOCETAXEL
     Indication: Breast cancer metastatic
     Dosage: 108 MILLIGRAM, Q3W
     Route: 042
     Dates: start: 20161111, end: 20161111
  17. DOCETAXEL [Suspect]
     Active Substance: DOCETAXEL
     Dosage: 130 MILLIGRAM, Q3W
     Route: 042
     Dates: start: 20160701
  18. TAMOXIFEN [Suspect]
     Active Substance: TAMOXIFEN
     Indication: HER2 positive breast cancer
     Dosage: 20 UNK
     Route: 065
     Dates: start: 20170623, end: 20171228
  19. TAMOXIFEN [Suspect]
     Active Substance: TAMOXIFEN
     Indication: Breast cancer metastatic
     Dosage: UNK
     Route: 065
     Dates: start: 20180213, end: 20180605
  20. TAMOXIFEN [Suspect]
     Active Substance: TAMOXIFEN
     Dosage: 20 MILLIGRAM, QD (20 MILLIGRAM, QD)
     Route: 048
     Dates: start: 20180213, end: 20180605
  21. TAMOXIFEN [Suspect]
     Active Substance: TAMOXIFEN
     Dosage: 20 MILLIGRAM, QD (20 MILLIGRAM, QD)
     Route: 048
     Dates: start: 20170623, end: 20181228
  22. ANASTROZOLE [Suspect]
     Active Substance: ANASTROZOLE
     Indication: Breast cancer metastatic
     Dosage: 1 MILLIGRAM, QD
     Route: 048
     Dates: start: 20180606, end: 20190904
  23. PERTUZUMAB [Suspect]
     Active Substance: PERTUZUMAB
     Indication: HER2 positive breast cancer
     Dosage: 840 MILLIGRAM, QD (LOADING DOSE)
     Route: 042
     Dates: start: 20160609, end: 20160609
  24. PERTUZUMAB [Suspect]
     Active Substance: PERTUZUMAB
     Indication: Breast cancer metastatic
     Dosage: 420 MILLIGRAM, Q3W
     Route: 042
     Dates: start: 20160701, end: 20171228
  25. PERTUZUMAB [Suspect]
     Active Substance: PERTUZUMAB
     Dosage: 840 MILLIGRAM, Q3W (840 MILLIGRAM, Q3WK   )
     Route: 042
     Dates: start: 20160609, end: 20160609
  26. PERTUZUMAB [Suspect]
     Active Substance: PERTUZUMAB
     Dosage: 840 MILLIGRAM, QD (840 MILLIGRAM, QD)
     Route: 042
     Dates: start: 20160609, end: 20160609
  27. PERTUZUMAB [Suspect]
     Active Substance: PERTUZUMAB
     Dosage: 420 MILLIGRAM, Q3W
     Route: 042
     Dates: start: 20160701, end: 20171228
  28. ADO-TRASTUZUMAB EMTANSINE [Suspect]
     Active Substance: ADO-TRASTUZUMAB EMTANSINE
     Indication: HER2 positive breast cancer
     Dosage: 280 MILLIGRAM (INFUSION, SOLUTION)
     Route: 042
     Dates: start: 20180131, end: 20180131
  29. ADO-TRASTUZUMAB EMTANSINE [Suspect]
     Active Substance: ADO-TRASTUZUMAB EMTANSINE
     Indication: Breast cancer metastatic
     Dosage: UNK
  30. ADO-TRASTUZUMAB EMTANSINE [Suspect]
     Active Substance: ADO-TRASTUZUMAB EMTANSINE
     Dosage: 280 MILLIGRAM, Q3W
     Route: 041
     Dates: start: 20180131
  31. FILGRASTIM [Concomitant]
     Active Substance: FILGRASTIM
     Dosage: 300 MICROGRAM
     Route: 065
     Dates: start: 20160731, end: 20161112
  32. ENOXAPARIN [Concomitant]
     Active Substance: ENOXAPARIN
     Dosage: UNK, QD
     Route: 058
     Dates: start: 20180214, end: 20180218
  33. ENOXAPARIN [Concomitant]
     Active Substance: ENOXAPARIN
     Dosage: 1200 MILLIGRAM, QD
     Route: 058
     Dates: start: 20180212, end: 20180212
  34. ENOXAPARIN [Concomitant]
     Active Substance: ENOXAPARIN
     Dosage: 40 MILLIGRAM, QD
     Route: 058
     Dates: start: 20170616, end: 20170623
  35. ENOXAPARIN [Concomitant]
     Active Substance: ENOXAPARIN
     Dosage: 40 MILLIGRAM, QD
     Route: 058
     Dates: start: 20180214, end: 20180214
  36. ENOXAPARIN [Concomitant]
     Active Substance: ENOXAPARIN
     Dosage: 40 MILLIGRAM, QD
     Route: 058
     Dates: start: 20180105, end: 20180117
  37. ENOXAPARIN [Concomitant]
     Active Substance: ENOXAPARIN
     Dosage: 40 MILLIGRAM, QD
     Route: 058
     Dates: start: 20180817, end: 20180914
  38. ENOXAPARIN [Concomitant]
     Active Substance: ENOXAPARIN
     Dosage: 120 MILLIGRAM, QD
     Route: 058
     Dates: start: 20180212, end: 20180212
  39. ENOXAPARIN [Concomitant]
     Active Substance: ENOXAPARIN
     Dosage: 40 MILLIGRAM, QD
     Route: 058
     Dates: start: 20160817, end: 20160914
  40. ENOXAPARIN [Concomitant]
     Active Substance: ENOXAPARIN
     Dosage: UNK
  41. ALBUTEROL [Concomitant]
     Active Substance: ALBUTEROL
     Dosage: 2.5 MILLIGRAM
     Route: 055
     Dates: start: 20170616, end: 20170618
  42. ALBUTEROL [Concomitant]
     Active Substance: ALBUTEROL
     Dosage: 2.5 MILLIGRAM
     Route: 055
     Dates: start: 20160822, end: 20160908
  43. ALBUTEROL [Concomitant]
     Active Substance: ALBUTEROL
     Dosage: UNK
     Route: 055
     Dates: start: 20160822, end: 20160908
  44. ALBUTEROL [Concomitant]
     Active Substance: ALBUTEROL
     Dosage: UNK
     Route: 055
     Dates: start: 20160822, end: 20160908
  45. MEROPENEM [Concomitant]
     Active Substance: MEROPENEM
     Dosage: 1 GRAM
     Route: 042
     Dates: start: 20160809, end: 20160817
  46. CALCIUM CARBONATE\CHOLECALCIFEROL [Concomitant]
     Active Substance: CALCIUM CARBONATE\CHOLECALCIFEROL
     Dosage: UNK UNK, QD (0.5 UNK, QD )
     Route: 048
     Dates: start: 20170621
  47. LEVETIRACETAM [Concomitant]
     Active Substance: LEVETIRACETAM
     Dosage: 1 GRAM
     Route: 042
     Dates: start: 20170616, end: 20170616
  48. LEVETIRACETAM [Concomitant]
     Active Substance: LEVETIRACETAM
     Dosage: 500 MILLIGRAM, BID
     Route: 042
     Dates: start: 20170617
  49. LEVETIRACETAM [Concomitant]
     Active Substance: LEVETIRACETAM
     Dosage: 1000 MILLIGRAM, QD
     Route: 048
     Dates: start: 20170617
  50. LEVETIRACETAM [Concomitant]
     Active Substance: LEVETIRACETAM
     Dosage: 500 MILLIGRAM, BID
     Route: 058
     Dates: start: 20170617
  51. RANITIDINE [Concomitant]
     Active Substance: RANITIDINE
     Dosage: 50 MILLIGRAM
     Route: 048
     Dates: start: 20170617, end: 20170618
  52. COTRIMOXAZOLE [Concomitant]
     Active Substance: SULFAMETHOXAZOLE\TRIMETHOPRIM
     Dosage: 483 MILLIGRAM
     Route: 048
     Dates: start: 20180131, end: 20180131
  53. COTRIMOXAZOLE [Concomitant]
     Active Substance: SULFAMETHOXAZOLE\TRIMETHOPRIM
     Dosage: 483 MILLIGRAM, QD
     Route: 048
     Dates: start: 20180131
  54. COTRIMOXAZOLE [Concomitant]
     Active Substance: SULFAMETHOXAZOLE\TRIMETHOPRIM
     Dosage: 480 MILLIGRAM, QD
     Route: 065
     Dates: start: 20180131
  55. COTRIMOXAZOLE [Concomitant]
     Active Substance: SULFAMETHOXAZOLE\TRIMETHOPRIM
     Dosage: 483 MILLIGRAM, QD
     Route: 065
     Dates: start: 20180131, end: 20180131
  56. METOCLOPRAMIDE [Concomitant]
     Active Substance: METOCLOPRAMIDE
     Dosage: 10 MILLIGRAM
     Route: 048
     Dates: start: 20160610, end: 20161111
  57. METOCLOPRAMIDE [Concomitant]
     Active Substance: METOCLOPRAMIDE
     Dosage: 10 MILLIGRAM
     Route: 048
     Dates: start: 20180131
  58. METOCLOPRAMIDE [Concomitant]
     Active Substance: METOCLOPRAMIDE
     Dosage: 10 MILLIGRAM
     Route: 048
     Dates: start: 20160110, end: 20161111
  59. METOCLOPRAMIDE [Concomitant]
     Active Substance: METOCLOPRAMIDE
     Dosage: 10 MILLIGRAM
     Route: 042
     Dates: start: 20180106, end: 20180106
  60. AMOXICILLIN [Concomitant]
     Active Substance: AMOXICILLIN
     Dosage: UNK, QD
     Route: 048
     Dates: start: 201712, end: 201712
  61. CHLORPHENIRAMINE MALEATE [Concomitant]
     Active Substance: CHLORPHENIRAMINE MALEATE
     Dosage: 10 MILLIGRAM
     Route: 042
     Dates: start: 20160907, end: 20160907
  62. CHLORPHENIRAMINE MALEATE [Concomitant]
     Active Substance: CHLORPHENIRAMINE MALEATE
     Dosage: 10 MILLIGRAM
     Route: 042
     Dates: start: 20160928, end: 20170724
  63. HYDROCORTISONE [Concomitant]
     Active Substance: HYDROCORTISONE
     Dosage: 100 MILLIGRAM
     Route: 042
     Dates: start: 20160907, end: 20160907
  64. HYDROCORTISONE [Concomitant]
     Active Substance: HYDROCORTISONE
     Dosage: 100 MILLIGRAM
     Route: 042
     Dates: start: 20160928
  65. MORPHINE SULFATE [Concomitant]
     Active Substance: MORPHINE SULFATE
     Dosage: 2.5 MILLIGRAM
     Route: 048
     Dates: start: 20160828
  66. SULFAMETHOXAZOLE\TRIMETHOPRIM [Concomitant]
     Active Substance: SULFAMETHOXAZOLE\TRIMETHOPRIM
     Dosage: 2112 MILLIGRAM
     Route: 042
     Dates: start: 20160811, end: 20160816
  67. CODINE LINCTUS [Concomitant]
     Dosage: 10 MILLILITER
     Route: 048
     Dates: start: 20170619, end: 20170619
  68. LEVOMEPROMAZINE [Concomitant]
     Active Substance: LEVOMEPROMAZINE
     Dosage: 6.25 MILLIGRAM
     Route: 058
     Dates: start: 20170617, end: 20170617
  69. LEVOMEPROMAZINE [Concomitant]
     Active Substance: LEVOMEPROMAZINE
     Dosage: UNK
     Route: 058
     Dates: start: 20170908, end: 20170925
  70. SODIUM CHLORIDE [Concomitant]
     Active Substance: SODIUM CHLORIDE
     Dosage: 5 MILLILITER, MONTHLY
     Route: 055
     Dates: start: 20170616, end: 20170623
  71. ZOPICLONE [Concomitant]
     Active Substance: ZOPICLONE
     Dosage: 3.75 MILLIGRAM
     Route: 048
     Dates: start: 20170618, end: 20170619
  72. SODIUM CHLORIDE [Concomitant]
     Active Substance: SODIUM CHLORIDE
     Dosage: 5 MILLILITER, QW (EVERY 4 WEEK)
     Route: 055
     Dates: start: 20170616, end: 20170623
  73. SODIUM CHLORIDE [Concomitant]
     Active Substance: SODIUM CHLORIDE
     Dosage: 58.75 MILLILITER
     Route: 042
     Dates: start: 20180105, end: 20180105
  74. SODIUM CHLORIDE [Concomitant]
     Active Substance: SODIUM CHLORIDE
     Dosage: 58.75 MILLILITER
     Route: 042
     Dates: start: 20180212, end: 20180214
  75. SODIUM CHLORIDE [Concomitant]
     Active Substance: SODIUM CHLORIDE
     Dosage: 58.75 MILLILITER
     Route: 042
     Dates: start: 20170616, end: 20170623
  76. SODIUM CHLORIDE [Concomitant]
     Active Substance: SODIUM CHLORIDE
     Dosage: 58.75 MILLILITER
     Route: 042
     Dates: start: 20170616, end: 20170616
  77. SODIUM CHLORIDE [Concomitant]
     Active Substance: SODIUM CHLORIDE
     Dosage: UNK
     Route: 042
  78. SODIUM CHLORIDE [Concomitant]
     Active Substance: SODIUM CHLORIDE
     Dosage: UNK
     Route: 042
     Dates: start: 20180212, end: 20180214
  79. HERBALS\SENNOSIDES [Concomitant]
     Active Substance: HERBALS\SENNOSIDES
     Dosage: 15 MILLIGRAM, QD
     Dates: start: 20160722
  80. CIPROFLOXACIN [Concomitant]
     Active Substance: CIPROFLOXACIN
     Dosage: UNK
     Dates: start: 20161009, end: 20161009
  81. CLARITHROMYCIN [Concomitant]
     Active Substance: CLARITHROMYCIN
     Dosage: 500 MILLIGRAM
     Route: 048
     Dates: start: 20180214, end: 20180301
  82. ENOXAPARIN SODIUM [Concomitant]
     Active Substance: ENOXAPARIN SODIUM
     Dosage: UNK
     Dates: start: 20160825, end: 20160914
  83. ENOXAPARIN SODIUM [Concomitant]
     Active Substance: ENOXAPARIN SODIUM
     Dosage: UNK
     Dates: start: 20160723, end: 20160723
  84. AMOXICILLIN\CLAVULANIC ACID [Concomitant]
     Active Substance: AMOXICILLIN\CLAVULANIC ACID
     Dosage: 1.2 GRAM, BID
     Route: 042
     Dates: start: 20180214, end: 20180214
  85. AMOXICILLIN\CLAVULANIC ACID [Concomitant]
     Active Substance: AMOXICILLIN\CLAVULANIC ACID
     Dosage: 625 MILLIGRAM, TID (625 MILLIGRAM 3/DAY)
     Dates: start: 20180215, end: 20180301
  86. AMOXICILLIN\CLAVULANIC ACID [Concomitant]
     Active Substance: AMOXICILLIN\CLAVULANIC ACID
     Dosage: 1875 MILLIGRAM, QD
     Dates: start: 20180215, end: 20180301
  87. AMOXICILLIN\CLAVULANIC ACID [Concomitant]
     Active Substance: AMOXICILLIN\CLAVULANIC ACID
     Dosage: 2.4 GRAM
     Route: 042
     Dates: start: 20180214, end: 20180214
  88. CYCLIZINE [Concomitant]
     Active Substance: CYCLIZINE
     Dosage: 50 MILLIGRAM, TID (50 MILLIGRAM 3/DAY  )
     Route: 048
     Dates: start: 20170902
  89. CYCLIZINE [Concomitant]
     Active Substance: CYCLIZINE
     Dosage: 150 MILLIGRAM, QD
     Route: 048
     Dates: start: 20170902
  90. DEXAMETHASONE [Concomitant]
     Active Substance: DEXAMETHASONE
     Dosage: 1 DOSAGE FORM, QD
     Route: 048
     Dates: start: 20160805, end: 201609
  91. DEXAMETHASONE [Concomitant]
     Active Substance: DEXAMETHASONE
     Dosage: 4 MILLIGRAM, QD
     Route: 048
     Dates: start: 20180110
  92. DEXAMETHASONE [Concomitant]
     Active Substance: DEXAMETHASONE
     Dosage: 8 MILLIGRAM, QD
     Route: 042
     Dates: start: 20160803, end: 20160805
  93. DEXAMETHASONE [Concomitant]
     Active Substance: DEXAMETHASONE
     Dosage: 2 MILLIGRAM, QD
     Route: 048
     Dates: start: 20170902, end: 20180110
  94. DEXAMETHASONE [Concomitant]
     Active Substance: DEXAMETHASONE
     Dosage: 4 MILLIGRAM, BID
     Route: 048
     Dates: start: 20170616, end: 20170902
  95. DEXAMETHASONE [Concomitant]
     Active Substance: DEXAMETHASONE
     Dosage: 8 MILLIGRAM
     Route: 042
     Dates: start: 20170616, end: 20170616
  96. DEXAMETHASONE [Concomitant]
     Active Substance: DEXAMETHASONE
     Dosage: 2 MILLIGRAM, QD
     Route: 048
     Dates: start: 20200111
  97. DEXAMETHASONE [Concomitant]
     Active Substance: DEXAMETHASONE
     Dosage: 8 MILLIGRAM
     Route: 048
     Dates: start: 20160610, end: 20160611
  98. DEXAMETHASONE [Concomitant]
     Active Substance: DEXAMETHASONE
     Dosage: 4 MILLIGRAM, BID
     Route: 048
     Dates: start: 20160722, end: 20160723
  99. DIFFLAM [Concomitant]
     Dosage: UNK
     Dates: start: 20160722, end: 20160723
  100. DOCUSATE [Concomitant]
     Active Substance: DOCUSATE
     Dosage: UNK
     Dates: start: 20160722, end: 20160724
  101. GENTAMICIN [Concomitant]
     Active Substance: GENTAMICIN
     Dosage: 375 MILLIGRAM, QD (375 MILLIGRAM, QD   )
     Route: 042
     Dates: start: 20161009, end: 20161009
  102. GENTAMICIN [Concomitant]
     Active Substance: GENTAMICIN
     Dosage: 400 MILLIGRAM
     Route: 042
     Dates: start: 20180212, end: 20180212
  103. LANSOPRAZOLE [Concomitant]
     Active Substance: LANSOPRAZOLE
     Dosage: 30 MILLIGRAM
     Route: 048
     Dates: start: 20160809
  104. LANSOPRAZOLE [Concomitant]
     Active Substance: LANSOPRAZOLE
     Dosage: 30 MILLIGRAM, QD
     Route: 048
     Dates: start: 20161010
  105. LANSOPRAZOLE [Concomitant]
     Active Substance: LANSOPRAZOLE
     Dosage: 30 MILLIGRAM, QD
     Route: 048
     Dates: start: 20160722, end: 20160724
  106. LEVOFLOXACIN [Concomitant]
     Active Substance: LEVOFLOXACIN
     Dosage: UNK
     Dates: start: 20161009, end: 20161010
  107. LEVOFLOXACIN [Concomitant]
     Active Substance: LEVOFLOXACIN
     Dosage: UNK
     Dates: start: 20161009, end: 20161017
  108. ONDANSETRON [Concomitant]
     Active Substance: ONDANSETRON
     Dosage: 8 MILLIGRAM (8 MILLIGRAM 3/D  )
     Route: 048
     Dates: start: 20170902
  109. ONDANSETRON [Concomitant]
     Active Substance: ONDANSETRON
     Dosage: 8 MILLIGRAM (8 MILLIGRAM 3/D  )
     Route: 048
     Dates: start: 20170616, end: 20170626
  110. OSELTAMIVIR PHOSPHATE [Concomitant]
     Active Substance: OSELTAMIVIR PHOSPHATE
     Dosage: 15 MILLIGRAM, BID
     Route: 048
     Dates: start: 20180213, end: 20180218
  111. OSELTAMIVIR PHOSPHATE [Concomitant]
     Active Substance: OSELTAMIVIR PHOSPHATE
     Dosage: 15 MILLIGRAM, BID
     Route: 048
     Dates: start: 20180213, end: 20180217
  112. ACETAMINOPHEN [Concomitant]
     Active Substance: ACETAMINOPHEN
     Dosage: 1 GRAM, QD
     Route: 048
     Dates: start: 20160722, end: 20160724
  113. ACETAMINOPHEN [Concomitant]
     Active Substance: ACETAMINOPHEN
     Dosage: 1 GRAM
     Route: 048
     Dates: start: 20170903
  114. ACETAMINOPHEN [Concomitant]
     Active Substance: ACETAMINOPHEN
     Dosage: 5 GRAM
     Route: 048
     Dates: start: 20160803
  115. ACETAMINOPHEN [Concomitant]
     Active Substance: ACETAMINOPHEN
     Dosage: 1 MILLIGRAM
     Route: 048
     Dates: start: 20160723, end: 20160724
  116. ACETAMINOPHEN [Concomitant]
     Active Substance: ACETAMINOPHEN
     Dosage: UNK
     Route: 048
     Dates: start: 20160803
  117. RAMIPRIL [Concomitant]
     Active Substance: RAMIPRIL
     Dosage: 2.3 MILLIGRAM, QD
     Route: 048
     Dates: start: 20160722
  118. PIPERACILLIN SODIUM\TAZOBACTAM SODIUM [Concomitant]
     Active Substance: PIPERACILLIN SODIUM\TAZOBACTAM SODIUM
     Dosage: 4.5 MILLIGRAM (4.5 MILLIGRAM 3/D)
     Route: 065
     Dates: start: 20180212, end: 20180214
  119. VANCOMYCIN [Concomitant]
     Active Substance: VANCOMYCIN
     Dosage: UNK
     Dates: start: 20161009, end: 20161009
  120. TRIMETHOPRIM [Concomitant]
     Active Substance: TRIMETHOPRIM
     Dosage: 50 MILLIGRAM, TID
     Route: 065
     Dates: start: 20170902
  121. CODEINE [Concomitant]
     Active Substance: CODEINE
     Dosage: UNK

REACTIONS (14)
  - Disease progression [Fatal]
  - Seizure [Recovering/Resolving]
  - Hyponatraemia [Recovered/Resolved]
  - Lower respiratory tract infection [Recovered/Resolved]
  - Chest pain [Recovered/Resolved]
  - Nausea [Recovered/Resolved]
  - Vomiting [Not Recovered/Not Resolved]
  - Back pain [Recovering/Resolving]
  - Dyspnoea [Not Recovered/Not Resolved]
  - Pneumonia [Recovered/Resolved]
  - Diarrhoea [Recovered/Resolved]
  - Excessive eye blinking [Recovered/Resolved]
  - Pain in jaw [Recovered/Resolved]
  - Off label use [Unknown]

NARRATIVE: CASE EVENT DATE: 20160722
